FAERS Safety Report 12385403 (Version 3)
Quarter: 2016Q3

REPORT INFORMATION
  Report Type: Report from Study
  Country: ES (occurrence: ES)
  Receive Date: 20160519
  Receipt Date: 20160715
  Transmission Date: 20161109
  Serious: Yes (Hospitalization, Other)
  Sender: FDA-Public Use
  Company Number: ES-AMGEN-ESPSP2016061457

PATIENT
  Age: 28 Year
  Sex: Male

DRUGS (10)
  1. BLINATUMOMAB [Suspect]
     Active Substance: BLINATUMOMAB
     Indication: ACUTE LYMPHOCYTIC LEUKAEMIA
     Dosage: 9 UNK, UNK
     Route: 065
  2. VINCRISTINE [Concomitant]
     Active Substance: VINCRISTINE
     Dosage: UNK
  3. BLINATUMOMAB [Suspect]
     Active Substance: BLINATUMOMAB
     Dosage: 28 UNK, UNK
     Route: 065
  4. IDARUBICIN [Concomitant]
     Active Substance: IDARUBICIN
     Dosage: UNK
  5. METHOTREXATE. [Concomitant]
     Active Substance: METHOTREXATE
  6. IMATINIB [Concomitant]
     Active Substance: IMATINIB
  7. CYCLOPHOSPHAMIDE. [Concomitant]
     Active Substance: CYCLOPHOSPHAMIDE
  8. DEXAMETHASONE. [Concomitant]
     Active Substance: DEXAMETHASONE
  9. L-ASPARAGINASE [Concomitant]
     Active Substance: ASPARAGINASE
  10. DASATINIB [Concomitant]
     Active Substance: DASATINIB
     Dosage: UNK

REACTIONS (6)
  - Thrombocytopenia [Recovered/Resolved]
  - Acute lymphocytic leukaemia recurrent [Unknown]
  - Disorientation [Recovered/Resolved]
  - Hepatotoxicity [Recovered/Resolved]
  - Dysgraphia [Recovered/Resolved]
  - Abnormal behaviour [Recovered/Resolved]
